FAERS Safety Report 11674628 (Version 1)
Quarter: 2015Q4

REPORT INFORMATION
  Report Type: Spontaneous
  Country: CH (occurrence: CH)
  Receive Date: 20151028
  Receipt Date: 20151028
  Transmission Date: 20160304
  Serious: Yes (Hospitalization)
  Sender: FDA-Public Use
  Company Number: CH-ASTRAZENECA-2015SF02014

PATIENT
  Age: 797 Month
  Sex: Female

DRUGS (8)
  1. BENERVA [Concomitant]
     Active Substance: THIAMINE
     Route: 048
     Dates: start: 20141016
  2. TOLVON [Suspect]
     Active Substance: MIANSERIN
     Indication: DEPRESSED MOOD
     Route: 048
     Dates: start: 20141117
  3. ATORVASTATIN [Concomitant]
     Active Substance: ATORVASTATIN
     Route: 048
     Dates: start: 2009
  4. ANAFRANIL [Suspect]
     Active Substance: CLOMIPRAMINE HYDROCHLORIDE
     Indication: DEPRESSED MOOD
     Route: 048
     Dates: start: 2009, end: 20141116
  5. ANXIOLIT [Suspect]
     Active Substance: OXAZEPAM
     Route: 048
     Dates: start: 20150303
  6. BECOZYM [Concomitant]
     Active Substance: VITAMINS
     Route: 048
     Dates: start: 20141016
  7. NEXIUM [Suspect]
     Active Substance: ESOMEPRAZOLE MAGNESIUM
     Route: 048
     Dates: start: 2009
  8. COVERSUM [Suspect]
     Active Substance: PERINDOPRIL
     Indication: HYPERTENSION
     Route: 048
     Dates: start: 20141121

REACTIONS (7)
  - Inappropriate antidiuretic hormone secretion [Unknown]
  - Vomiting [Unknown]
  - Asthenia [Unknown]
  - Decreased appetite [Unknown]
  - General physical health deterioration [Unknown]
  - Hyponatraemia [Unknown]
  - Nausea [Unknown]

NARRATIVE: CASE EVENT DATE: 201502
